FAERS Safety Report 10379469 (Version 2)
Quarter: 2014Q4

REPORT INFORMATION
  Report Type: Spontaneous
  Country: US (occurrence: US)
  Receive Date: 20140812
  Receipt Date: 20141024
  Transmission Date: 20150528
  Serious: Yes (Hospitalization, Disabling, Congenital Anomaly, Other)
  Sender: FDA-Public Use
  Company Number: US-TEVA-499484USA

PATIENT
  Sex: Male

DRUGS (1)
  1. PARAGARD T380A [Suspect]
     Active Substance: COPPER
     Route: 065

REACTIONS (19)
  - Walking aid user [Unknown]
  - General physical condition abnormal [Unknown]
  - Cerebral palsy [Not Recovered/Not Resolved]
  - Wheelchair user [Unknown]
  - Hypertonia [Not Recovered/Not Resolved]
  - Inability to crawl [Not Recovered/Not Resolved]
  - Immobile [Not Recovered/Not Resolved]
  - Abasia [Not Recovered/Not Resolved]
  - Orthosis user [Unknown]
  - Underweight [Recovered/Resolved]
  - Schizencephaly [Not Recovered/Not Resolved]
  - Adverse event [Unknown]
  - Nutritional condition abnormal [Recovered/Resolved]
  - Foetal exposure during pregnancy [Unknown]
  - Movement disorder [Not Recovered/Not Resolved]
  - Lack of spontaneous speech [Not Recovered/Not Resolved]
  - Seizure [Unknown]
  - Developmental delay [Unknown]
  - Activities of daily living impaired [Not Recovered/Not Resolved]

NARRATIVE: CASE EVENT DATE: 2009
